FAERS Safety Report 19192598 (Version 2)
Quarter: 2021Q2

REPORT INFORMATION
  Report Type: Spontaneous
  Country: DE (occurrence: DE)
  Receive Date: 20210428
  Receipt Date: 20210518
  Transmission Date: 20210717
  Serious: No
  Sender: FDA-Public Use
  Company Number: DE-INCYTE CORPORATION-2021IN003585

PATIENT

DRUGS (1)
  1. JAKAVI [Suspect]
     Active Substance: RUXOLITINIB
     Indication: POLYCYTHAEMIA VERA
     Dosage: 20 MG (10 MG IN THE MORNINGS AND 10 MG IN THE EVENINGS)
     Route: 065
     Dates: start: 201909

REACTIONS (4)
  - Lacrimal haemorrhage [Unknown]
  - Contusion [Unknown]
  - Sensitive skin [Unknown]
  - Platelet count increased [Unknown]

NARRATIVE: CASE EVENT DATE: 2020
